FAERS Safety Report 13679277 (Version 1)
Quarter: 2017Q2

REPORT INFORMATION
  Report Type: Spontaneous
  Country: BR (occurrence: BR)
  Receive Date: 20170622
  Receipt Date: 20170622
  Transmission Date: 20170830
  Serious: Yes (Other)
  Sender: FDA-Public Use
  Company Number: BR-ALEXION-A201702977

PATIENT
  Age: 69 Year
  Sex: Female

DRUGS (2)
  1. SOLIRIS [Suspect]
     Active Substance: ECULIZUMAB
     Dosage: 900 MG, Q2W
     Route: 042
     Dates: start: 20160519
  2. SOLIRIS [Suspect]
     Active Substance: ECULIZUMAB
     Indication: PAROXYSMAL NOCTURNAL HAEMOGLOBINURIA
     Dosage: 600 MG, FOR 4 WEEKS
     Route: 042
     Dates: start: 20160420, end: 20160515

REACTIONS (11)
  - Chromaturia [Not Recovered/Not Resolved]
  - Pharyngitis [Unknown]
  - Haemolysis [Not Recovered/Not Resolved]
  - Tinnitus [Unknown]
  - Deafness unilateral [Unknown]
  - Oropharyngeal pain [Not Recovered/Not Resolved]
  - Headache [Recovering/Resolving]
  - Adverse event [Not Recovered/Not Resolved]
  - Nausea [Recovered/Resolved]
  - Ear infection [Unknown]
  - Fatigue [Unknown]

NARRATIVE: CASE EVENT DATE: 201703
